FAERS Safety Report 13739022 (Version 2)
Quarter: 2018Q2

REPORT INFORMATION
  Report Type: Report from Study
  Country: US (occurrence: US)
  Receive Date: 20170710
  Receipt Date: 20180627
  Transmission Date: 20180711
  Serious: Yes (Other)
  Sender: FDA-Public Use
  Company Number: US-SAOL THERAPEUTICS-2016SAO00863

PATIENT
  Age: 62 Year
  Sex: Female

DRUGS (7)
  1. MORPHINE [Suspect]
     Active Substance: MORPHINE
     Dosage: 5.496 MG, \DAY
     Route: 037
     Dates: start: 20161003
  2. BUPIVACAINE. [Suspect]
     Active Substance: BUPIVACAINE
     Dosage: 0.9159 MG, \DAY
     Route: 037
     Dates: start: 20161003
  3. UNSPECIFIED ANTICOAGULANTS [Concomitant]
  4. BUPIVACAINE. [Suspect]
     Active Substance: BUPIVACAINE
     Dosage: 0.8720 MG, \DAY
     Route: 037
     Dates: start: 20160628, end: 20161003
  5. BACLOFEN. [Suspect]
     Active Substance: BACLOFEN
     Dosage: 34.88 ?G, \DAY
     Route: 037
     Dates: start: 20160628, end: 20161003
  6. MORPHINE [Suspect]
     Active Substance: MORPHINE
     Dosage: 5.232 MG, \DAY
     Route: 037
     Dates: start: 20160628, end: 20161003
  7. BACLOFEN. [Suspect]
     Active Substance: BACLOFEN
     Dosage: 36.64 ?G, \DAY
     Route: 037
     Dates: start: 20161003

REACTIONS (3)
  - Device infusion issue [Recovering/Resolving]
  - Back pain [Not Recovered/Not Resolved]
  - Device occlusion [Unknown]

NARRATIVE: CASE EVENT DATE: 20160922
